FAERS Safety Report 15761509 (Version 6)
Quarter: 2023Q4

REPORT INFORMATION
  Report Type: Spontaneous
  Country: JP (occurrence: JP)
  Receive Date: 20181226
  Receipt Date: 20231118
  Transmission Date: 20240109
  Serious: Yes (Other)
  Sender: FDA-Public Use
  Company Number: JP-SANOFI-2018SA214423

PATIENT
  Age: 13 Month
  Sex: Male
  Weight: 6.9 kg

DRUGS (8)
  1. SABRIL [Suspect]
     Active Substance: VIGABATRIN
     Indication: Infantile spasms
     Dosage: DAILY DOSE: 375 MG, BID
     Route: 048
     Dates: start: 20180524, end: 20180528
  2. SABRIL [Suspect]
     Active Substance: VIGABATRIN
     Dosage: DAILY DOSE: 600 MG, BID
     Route: 048
     Dates: start: 20180529, end: 20180604
  3. SABRIL [Suspect]
     Active Substance: VIGABATRIN
     Dosage: DAILY DOSE: 750 MG, BID
     Route: 048
     Dates: start: 20180605, end: 20180607
  4. SABRIL [Suspect]
     Active Substance: VIGABATRIN
     Dosage: DAILY DOSE: 1125 MG, BID
     Route: 048
     Dates: start: 20180608, end: 20180611
  5. SABRIL [Suspect]
     Active Substance: VIGABATRIN
     Dosage: DAILY DOSE: 600 MG, BID
     Route: 048
     Dates: start: 20180612, end: 20180614
  6. SABRIL [Suspect]
     Active Substance: VIGABATRIN
     Dosage: DAILY DOSE: 250 MG, BID
     Route: 048
     Dates: start: 20180615, end: 20180619
  7. CARBOCYSTEINE [Concomitant]
     Active Substance: CARBOCYSTEINE
     Indication: Otitis media
     Dosage: 70 MG, TID
     Route: 048
     Dates: start: 20180523, end: 20180629
  8. CORTROSYN Z [TETRACOSACTIDE ACETATE] [Concomitant]
     Indication: Infantile spasms
     Dosage: 0.04-0.2 MG, ONCE A DAY, DAILY
     Route: 065
     Dates: start: 20180619, end: 20180713

REACTIONS (2)
  - Retinogram abnormal [Not Recovered/Not Resolved]
  - Drug ineffective [Unknown]

NARRATIVE: CASE EVENT DATE: 20181213
